FAERS Safety Report 6043331-4 (Version None)
Quarter: 2009Q1

REPORT INFORMATION
  Report Type: 
  Country: None (occurrence: None)
  Receive Date: 20090115
  Receipt Date: 20081231
  Transmission Date: 20090719
  Serious: Yes (Other)
  Sender: FDA-Public Use
  Company Number: A-US2009-23260

PATIENT
  Age: 49 Year
  Sex: Female
  Weight: 88 kg

DRUGS (7)
  1. ZAVESCA [Suspect]
     Indication: GAUCHER'S DISEASE
     Dosage: 100 MIG, TID, ORAL
     Route: 048
     Dates: start: 20050601, end: 20081212
  2. ZAVESCA [Suspect]
     Indication: GAUCHER'S DISEASE
     Dosage: 100 MIG, TID, ORAL
     Route: 048
     Dates: start: 20090104
  3. LEXAPRO [Concomitant]
  4. MOTRIN [Concomitant]
  5. ACETAMINOPHEN [Concomitant]
  6. VITAMIN D [Concomitant]
  7. AMBIEN [Concomitant]

REACTIONS (8)
  - ABDOMINAL DISTENSION [None]
  - ASTHENIA [None]
  - CONSTIPATION [None]
  - DIARRHOEA [None]
  - FATIGUE [None]
  - FLATULENCE [None]
  - GASTROINTESTINAL INFLAMMATION [None]
  - LARGE INTESTINAL ULCER [None]
